FAERS Safety Report 9753769 (Version 2)
Quarter: 2015Q3

REPORT INFORMATION
  Report Type: Spontaneous
  Country: US (occurrence: US)
  Receive Date: 20131213
  Receipt Date: 20150805
  Transmission Date: 20151125
  Serious: No
  Sender: FDA-Public Use
  Company Number: US-GILEAD-2010-0027017

PATIENT
  Age: 74 Year
  Sex: Female
  Weight: 72.71 kg

DRUGS (29)
  1. ALPHAGAN P [Concomitant]
     Active Substance: BRIMONIDINE TARTRATE
  2. LETAIRIS [Suspect]
     Active Substance: AMBRISENTAN
     Indication: PULMONARY ARTERIAL HYPERTENSION
     Route: 048
     Dates: start: 20100129
  3. DIOVAN [Concomitant]
     Active Substance: VALSARTAN
  4. ZITHROMAX [Concomitant]
     Active Substance: AZITHROMYCIN DIHYDRATE
  5. MULTIVITAMIN [Concomitant]
     Active Substance: VITAMINS
  6. ANUSOL-HC [Concomitant]
  7. DEXAMETHASONE/TOBRAMYCIN [Concomitant]
  8. PRILOSEC [Concomitant]
     Active Substance: OMEPRAZOLE MAGNESIUM
  9. IMODIUM A-D [Concomitant]
     Active Substance: LOPERAMIDE HYDROCHLORIDE
  10. TYLENOL [Concomitant]
     Active Substance: ACETAMINOPHEN
  11. NORVASC [Concomitant]
     Active Substance: AMLODIPINE BESYLATE
  12. OXYCODONE [Concomitant]
     Active Substance: OXYCODONE
  13. SOD CHLORIDE [Concomitant]
  14. ESTER-C [Concomitant]
     Active Substance: CALCIUM\VITAMINS
  15. MEDROL [Concomitant]
     Active Substance: METHYLPREDNISOLONE
  16. MUCINEX [Concomitant]
     Active Substance: GUAIFENESIN
  17. CITRUCEL [Concomitant]
     Active Substance: METHYLCELLULOSE (4000 MPA.S)
  18. FOLIC ACID. [Concomitant]
     Active Substance: FOLIC ACID
  19. ASPIRIN. [Concomitant]
     Active Substance: ASPIRIN
  20. OXYGEN. [Concomitant]
     Active Substance: OXYGEN
  21. ADVIL [Concomitant]
     Active Substance: IBUPROFEN
  22. MENTAX [Concomitant]
     Active Substance: BUTENAFINE HYDROCHLORIDE
  23. STERILE WATER [Concomitant]
     Active Substance: WATER
  24. GLUCOSAMINE CHONDR [Concomitant]
  25. REVATIO [Concomitant]
     Active Substance: SILDENAFIL CITRATE
  26. AMBIEN [Concomitant]
     Active Substance: ZOLPIDEM TARTRATE
  27. ERYTHROMYCIN. [Concomitant]
     Active Substance: ERYTHROMYCIN
  28. CALCIUM+D [Concomitant]
  29. PRIMROSE SOFTGEL [Concomitant]

REACTIONS (2)
  - Oedema [Unknown]
  - Fatigue [Unknown]
